FAERS Safety Report 7147824-8 (Version None)
Quarter: 2010Q4

REPORT INFORMATION
  Report Type: 
  Country: None (occurrence: None)
  Receive Date: 20101206
  Receipt Date: 20101206
  Transmission Date: 20110411
  Serious: Yes (Other)
  Sender: FDA-Public Use
  Company Number: None

PATIENT
  Sex: Female
  Weight: 33.5662 kg

DRUGS (2)
  1. DEPAKOTE [Suspect]
     Indication: CONVULSION
     Dosage: 3 TABS QHS PO
     Route: 048
     Dates: start: 20080101
  2. DEPAKOTE [Suspect]
     Indication: HEADACHE
     Dosage: 3 TABS QHS PO
     Route: 048
     Dates: start: 20080101

REACTIONS (1)
  - NAUSEA [None]
